FAERS Safety Report 10054071 (Version 1)
Quarter: 2014Q2

REPORT INFORMATION
  Report Type: Spontaneous
  Country: US (occurrence: US)
  Receive Date: 20140402
  Receipt Date: 20140402
  Transmission Date: 20141212
  Serious: Yes (Other)
  Sender: FDA-Public Use
  Company Number: CHPA2014US004489

PATIENT
  Age: 65 Year
  Sex: Female

DRUGS (1)
  1. VOLTAREN GEL [Suspect]
     Indication: ARTHRITIS
     Dosage: PENCIL ERASER AMOUNT, ONCE/SINGLE
     Route: 061
     Dates: start: 20140319, end: 20140319

REACTIONS (2)
  - Dizziness [Recovered/Resolved]
  - Diplopia [Recovered/Resolved]
